FAERS Safety Report 8018709-X (Version None)
Quarter: 2012Q1

REPORT INFORMATION
  Report Type: 
  Country: None (occurrence: None)
  Receive Date: 20120103
  Receipt Date: 20120103
  Transmission Date: 20120608
  Serious: Yes (Other)
  Sender: FDA-Public Use
  Company Number: None

PATIENT
  Age: 43 Year
  Sex: Female
  Weight: 63.502 kg

DRUGS (1)
  1. BOTOX COSMETIC [Suspect]
     Indication: SKIN WRINKLING
     Dosage: 24 UNITS
     Route: 030
     Dates: start: 20111231, end: 20111231

REACTIONS (5)
  - MYALGIA [None]
  - DIZZINESS [None]
  - FATIGUE [None]
  - ANXIETY [None]
  - CONFUSIONAL STATE [None]
